FAERS Safety Report 12281448 (Version 1)
Quarter: 2016Q2

REPORT INFORMATION
  Report Type: Report from Study
  Country: CH (occurrence: CH)
  Receive Date: 20160419
  Receipt Date: 20160419
  Transmission Date: 20160815
  Serious: Yes (Death, Other)
  Sender: FDA-Public Use
  Company Number: CH-CELGENEUS-151-21880-12063259

PATIENT

DRUGS (3)
  1. REVLIMID [Suspect]
     Active Substance: LENALIDOMIDE
     Indication: B-CELL LYMPHOMA
     Route: 048
  2. RITUXIMAB [Suspect]
     Active Substance: RITUXIMAB
     Indication: B-CELL LYMPHOMA
     Route: 065
  3. BENDAMUSTINE [Suspect]
     Active Substance: BENDAMUSTINE
     Indication: B-CELL LYMPHOMA
     Route: 065

REACTIONS (16)
  - Neutropenia [Unknown]
  - Gastrointestinal disorder [Unknown]
  - Febrile neutropenia [Unknown]
  - Dizziness [Unknown]
  - Thrombocytopenia [Unknown]
  - Rash [Unknown]
  - Central nervous system haemorrhage [Fatal]
  - Myocardial infarction [Unknown]
  - Pneumonitis [Fatal]
  - B-cell lymphoma [Unknown]
  - Sudden death [Fatal]
  - Syncope [Unknown]
  - Leukopenia [Unknown]
  - Anaemia [Unknown]
  - Infection [Unknown]
  - Fatigue [Unknown]
